FAERS Safety Report 6202711-4 (Version None)
Quarter: 2009Q2

REPORT INFORMATION
  Report Type: 
  Country: None (occurrence: None)
  Receive Date: 20090526
  Receipt Date: 20090518
  Transmission Date: 20091009
  Serious: Yes (Other)
  Sender: FDA-Public Use
  Company Number: PHEH2008US08907

PATIENT
  Sex: Female

DRUGS (2)
  1. AREDIA [Suspect]
  2. ZOMETA [Suspect]
     Dosage: UNK
     Dates: start: 20030401, end: 20070101

REACTIONS (11)
  - ANHEDONIA [None]
  - ANXIETY [None]
  - BONE DEBRIDEMENT [None]
  - BONE DISORDER [None]
  - DISABILITY [None]
  - GINGIVAL SWELLING [None]
  - INJURY [None]
  - NEUROPATHY PERIPHERAL [None]
  - OSTEOMYELITIS [None]
  - OSTEONECROSIS [None]
  - PAIN [None]
